FAERS Safety Report 23326774 (Version 1)
Quarter: 2023Q4

REPORT INFORMATION
  Report Type: Spontaneous
  Country: GB (occurrence: GB)
  Receive Date: 20231221
  Receipt Date: 20231221
  Transmission Date: 20240109
  Serious: Yes (Hospitalization, Other)
  Sender: FDA-Public Use
  Company Number: None

PATIENT
  Age: 60 Year

DRUGS (7)
  1. ARIPIPRAZOLE [Suspect]
     Active Substance: ARIPIPRAZOLE
     Indication: Schizophrenia
     Dosage: 5 MG
     Route: 065
     Dates: start: 20230717, end: 20231201
  2. CODEINE [Concomitant]
     Active Substance: CODEINE
  3. RISPERIDONE [Concomitant]
     Active Substance: RISPERIDONE
  4. ENOXAPARIN [Concomitant]
     Active Substance: ENOXAPARIN
  5. LEVOTHYROXINE [Concomitant]
     Active Substance: LEVOTHYROXINE
  6. FOLIC ACID [Concomitant]
     Active Substance: FOLIC ACID
  7. ACETAMINOPHEN [Concomitant]
     Active Substance: ACETAMINOPHEN

REACTIONS (1)
  - Blood sodium decreased [Not Recovered/Not Resolved]

NARRATIVE: CASE EVENT DATE: 20231201
